FAERS Safety Report 5620413-X (Version None)
Quarter: 2008Q1

REPORT INFORMATION
  Report Type: 
  Country: None (occurrence: None)
  Receive Date: 20080208
  Receipt Date: 20080129
  Transmission Date: 20080703
  Serious: Yes (Other)
  Sender: FDA-Public Use
  Company Number: US-ELI_LILLY_AND_COMPANY-US200801006361

PATIENT
  Sex: Female

DRUGS (3)
  1. HUMALOG MIX 75/25 [Suspect]
  2. HUMALOG MIX 75/25 [Suspect]
  3. HUMALOG MIX 75/25 [Suspect]

REACTIONS (5)
  - BLINDNESS [None]
  - BLOOD GLUCOSE FLUCTUATION [None]
  - CATARACT [None]
  - MOOD ALTERED [None]
  - STOMACH DISCOMFORT [None]
